FAERS Safety Report 7726752-0 (Version None)
Quarter: 2011Q3

REPORT INFORMATION
  Report Type: 
  Country: None (occurrence: None)
  Receive Date: 20110902
  Receipt Date: 20081031
  Transmission Date: 20111222
  Serious: Yes (Hospitalization)
  Sender: FDA-Public Use
  Company Number: US-GLAXOSMITHKLINE-A0755090A

PATIENT
  Age: 69 Year
  Sex: Male
  Weight: 79.5 kg

DRUGS (10)
  1. OMEPRAZOLE [Concomitant]
  2. LASIX [Concomitant]
  3. MONOPRIL [Concomitant]
  4. ZOCOR [Concomitant]
  5. PLAVIX [Concomitant]
  6. AVANDIA [Suspect]
     Indication: TYPE 2 DIABETES MELLITUS
     Dosage: 8MG TWICE PER DAY
     Route: 048
     Dates: start: 20010101, end: 20060101
  7. GLYBURIDE [Concomitant]
  8. PLENDIL [Concomitant]
  9. COSOPT [Concomitant]
  10. SYNTHROID [Concomitant]

REACTIONS (2)
  - CEREBROVASCULAR ACCIDENT [None]
  - TRANSIENT ISCHAEMIC ATTACK [None]
